FAERS Safety Report 9491356 (Version 3)
Quarter: 2013Q4

REPORT INFORMATION
  Report Type: Spontaneous
  Country: JP (occurrence: JP)
  Receive Date: 20130830
  Receipt Date: 20131101
  Transmission Date: 20140711
  Serious: Yes (Death)
  Sender: FDA-Public Use
  Company Number: JP-ELI_LILLY_AND_COMPANY-JP201308006769

PATIENT
  Age: 21 Year
  Sex: Male
  Weight: 58.5 kg

DRUGS (14)
  1. STRATTERA [Suspect]
     Indication: ATTENTION DEFICIT/HYPERACTIVITY DISORDER
     Dosage: 20 MG, BID
     Route: 048
     Dates: start: 20130401, end: 20130407
  2. STRATTERA [Suspect]
     Dosage: 40 MG, BID
     Route: 048
     Dates: start: 20130408, end: 201308
  3. MAGNESIUM OXIDE [Concomitant]
     Dosage: 2 G, UNK
     Route: 048
     Dates: start: 20130401, end: 20130812
  4. LEXAPRO [Concomitant]
     Indication: DEPRESSION
     Dosage: 10 MG, QD
     Route: 048
     Dates: start: 20130304, end: 20130310
  5. LEXAPRO [Concomitant]
     Dosage: 20 MG, QD
     Route: 048
     Dates: start: 20130311, end: 201308
  6. ALESION [Concomitant]
     Indication: DERMATITIS ATOPIC
     Dosage: 20 MG, QD
     Route: 048
     Dates: start: 20120402, end: 201308
  7. LUNESTA [Concomitant]
     Indication: INSOMNIA
     Dosage: 3 MG, QD
     Route: 048
     Dates: start: 20130601, end: 201308
  8. AROPHALM [Concomitant]
     Indication: INSOMNIA
     Dosage: 1 MG, QD
     Route: 048
     Dates: start: 20120218, end: 20121014
  9. AROPHALM [Concomitant]
     Dosage: 2 MG, QD
     Route: 048
     Dates: start: 20121015, end: 201308
  10. TETRAMIDE [Concomitant]
     Indication: INSOMNIA
     Dosage: 30 MG, QD
     Route: 048
     Dates: start: 20130610, end: 201308
  11. ZOLPIDEM [Concomitant]
     Dosage: UNK, PRN
     Route: 048
     Dates: start: 20121015, end: 20130812
  12. LOCOID [Concomitant]
     Dosage: UNK
     Route: 062
     Dates: start: 20121112, end: 20130812
  13. SULTANOL [Concomitant]
     Dosage: UNK
     Route: 048
     Dates: end: 20130812
  14. MIRADOL [Concomitant]
     Dosage: UNK
     Dates: end: 20130729

REACTIONS (4)
  - Death [Fatal]
  - Drug-induced liver injury [Unknown]
  - Dizziness [Unknown]
  - Vomiting [Unknown]
